FAERS Safety Report 22132690 (Version 1)
Quarter: 2023Q1

REPORT INFORMATION
  Report Type: Spontaneous
  Country: US (occurrence: US)
  Receive Date: 20230323
  Receipt Date: 20230323
  Transmission Date: 20230418
  Serious: Yes (Hospitalization, Other)
  Sender: FDA-Public Use
  Company Number: US-ELI_LILLY_AND_COMPANY-US202303008038

PATIENT
  Age: 58 Year
  Sex: Female
  Weight: 83 kg

DRUGS (4)
  1. ABEMACICLIB [Suspect]
     Active Substance: ABEMACICLIB
     Indication: Neoplasm
     Dosage: 150 MG, BID
     Route: 048
     Dates: start: 20221005
  2. FULVESTRANT [Suspect]
     Active Substance: FULVESTRANT
     Indication: Neoplasm
     Dosage: 500 MG, OTHER, ON STUDY DAYS 1, 15, 29
     Route: 030
     Dates: start: 20221005
  3. PROCHLORPERAZINE [Concomitant]
     Active Substance: PROCHLORPERAZINE
     Indication: Product used for unknown indication
     Dosage: UNK
     Dates: start: 20221005, end: 20221103
  4. LOPERAMIDE [Concomitant]
     Active Substance: LOPERAMIDE
     Indication: Product used for unknown indication

REACTIONS (4)
  - Dehydration [Unknown]
  - Diarrhoea [Recovered/Resolved]
  - Malignant neoplasm progression [Unknown]
  - Diarrhoea [Recovered/Resolved]

NARRATIVE: CASE EVENT DATE: 20221008
